FAERS Safety Report 9496818 (Version 1)
Quarter: 2013Q3

REPORT INFORMATION
  Report Type: Spontaneous
  Country: US (occurrence: None)
  Receive Date: 20130903
  Receipt Date: 20130903
  Transmission Date: 20140515
  Serious: No
  Sender: FDA-Public Use
  Company Number: None

PATIENT
  Age: 65 Year
  Sex: Male
  Weight: 79.38 kg

DRUGS (5)
  1. FIRMAGON [Suspect]
     Indication: PROSTATE CANCER
     Dosage: INTO THE MUSCLE
  2. LIPITOR [Concomitant]
  3. VITIMAN D [Concomitant]
  4. VITAMIN C [Concomitant]
  5. MULTI [Concomitant]

REACTIONS (3)
  - Pyrexia [None]
  - Impaired work ability [None]
  - Swelling [None]
